FAERS Safety Report 4681124-0 (Version None)
Quarter: 2005Q2

REPORT INFORMATION
  Report Type: 
  Country: None (occurrence: None)
  Receive Date: 20050603
  Receipt Date: 20050427
  Transmission Date: 20051028
  Serious: Yes (Death)
  Sender: FDA-Public Use
  Company Number: CA-MERCK-0504CAN00174

PATIENT
  Age: 64 Year
  Sex: Male

DRUGS (14)
  1. DESLORATADINE [Suspect]
     Indication: RHINITIS
     Route: 048
     Dates: start: 20031119
  2. MOMETASONE FUROATE [Suspect]
     Route: 065
     Dates: start: 20011221
  3. ROSUVASTATIN CALCIUM [Suspect]
     Route: 065
  4. TIOTROPIUM BROMIDE [Concomitant]
     Route: 065
  5. LORAZEPAM [Concomitant]
     Route: 065
  6. ASPIRIN [Concomitant]
     Route: 065
  7. AMLODIPINE BESYLATE [Concomitant]
     Route: 065
  8. VENLAFAXINE HYDROCHLORIDE [Concomitant]
     Route: 065
  9. VASOTEC [Concomitant]
     Route: 048
  10. BUPROPION HYDROCHLORIDE [Concomitant]
     Route: 065
  11. LANSOPRAZOLE [Concomitant]
     Route: 065
  12. CYANOCOBALAMIN [Concomitant]
     Route: 030
  13. ZETIA [Suspect]
     Route: 048
     Dates: start: 20040429
  14. DESLORATADINE [Suspect]
     Indication: HYPERSENSITIVITY
     Route: 048
     Dates: start: 20031119

REACTIONS (1)
  - MYOCARDIAL INFARCTION [None]
